FAERS Safety Report 7821994-8 (Version None)
Quarter: 2011Q4

REPORT INFORMATION
  Report Type: 
  Country: None (occurrence: None)
  Receive Date: 20111018
  Receipt Date: 20110530
  Transmission Date: 20120403
  Serious: No
  Sender: FDA-Public Use
  Company Number: US-ASTRAZENECA-2011SE23005

PATIENT
  Sex: Female

DRUGS (6)
  1. SYMBICORT [Suspect]
     Dosage: 160/4.5 MCG ONE DOSE (2 PUFFS) TWICE A DAY
     Route: 055
     Dates: start: 20110401, end: 20110401
  2. SYMBICORT [Suspect]
     Dosage: 80/4.5 MCG
     Route: 055
     Dates: start: 20110401
  3. ALBUTEROL [Concomitant]
  4. SYMBICORT [Suspect]
     Indication: ASTHMA
     Dosage: 80/4.5 MCG TWICE A DAY
     Route: 055
     Dates: start: 20090101, end: 20110401
  5. ALLEGRA [Concomitant]
  6. SPIRIVA [Concomitant]

REACTIONS (4)
  - DRY MOUTH [None]
  - CHEST DISCOMFORT [None]
  - DYSPNOEA [None]
  - DYSPHONIA [None]
